FAERS Safety Report 7184179-7 (Version None)
Quarter: 2010Q4

REPORT INFORMATION
  Report Type: 
  Country: None (occurrence: None)
  Receive Date: 20101123
  Receipt Date: 20100803
  Transmission Date: 20110411
  Serious: No
  Sender: FDA-Public Use
  Company Number: 014150

PATIENT
  Sex: Female

DRUGS (1)
  1. CIMZIA [Suspect]
     Dosage: (SUBCUTANEOUS)
     Route: 058
     Dates: start: 20091201

REACTIONS (6)
  - ACNE [None]
  - DERMATITIS CONTACT [None]
  - ECZEMA [None]
  - IMMUNE SYSTEM DISORDER [None]
  - MALAISE [None]
  - URINARY TRACT INFECTION [None]
